FAERS Safety Report 8094714-2 (Version None)
Quarter: 2012Q1

REPORT INFORMATION
  Report Type: 
  Country: None (occurrence: None)
  Receive Date: 20120129
  Receipt Date: 20111219
  Transmission Date: 20120608
  Serious: No
  Sender: FDA-Public Use
  Company Number: US-ABBOTT-11P-163-0885268-00

PATIENT
  Sex: Female
  Weight: 112.14 kg

DRUGS (10)
  1. HUMIRA [Suspect]
     Indication: RHEUMATOID ARTHRITIS
     Dates: start: 20110901
  2. UNKNOWN BLOOD PRESSURE MEDICATION [Concomitant]
     Indication: HYPERTENSION
  3. UNKNOWN MUSCLE RELAXANT [Concomitant]
     Indication: MUSCLE SPASMS
  4. ULTRAM [Concomitant]
     Indication: PAIN
  5. GABAPENTIN [Concomitant]
     Indication: NEUROPATHY PERIPHERAL
  6. HUMIRA [Suspect]
     Indication: PSORIASIS
     Dates: start: 20080101, end: 20100401
  7. XANAX [Concomitant]
     Indication: ANXIETY
  8. VITAMIN D [Concomitant]
     Indication: VITAMIN SUPPLEMENTATION
  9. PROZAC [Concomitant]
     Indication: DEPRESSION
  10. BENADRYL [Concomitant]
     Indication: HYPERSENSITIVITY

REACTIONS (1)
  - BLISTER [None]
